FAERS Safety Report 8252463-1 (Version None)
Quarter: 2012Q2

REPORT INFORMATION
  Report Type: 
  Country: None (occurrence: None)
  Receive Date: 20120402
  Receipt Date: 20110720
  Transmission Date: 20120825
  Serious: No
  Sender: FDA-Public Use
  Company Number: US-ABBOTT-11P-163-0840584-00

PATIENT
  Sex: Male
  Weight: 108.96 kg

DRUGS (3)
  1. DIOVAN [Concomitant]
     Indication: HYPERTENSION
     Route: 048
  2. LOPID [Concomitant]
     Indication: BLOOD CHOLESTEROL INCREASED
     Route: 048
  3. ANDROGEL [Suspect]
     Indication: BLOOD TESTOSTERONE DECREASED
     Dosage: ONE PUMP ONCE DAILY
     Route: 062
     Dates: start: 20090101

REACTIONS (1)
  - ERECTILE DYSFUNCTION [None]
